FAERS Safety Report 7419185-8 (Version None)
Quarter: 2011Q2

REPORT INFORMATION
  Report Type: 
  Country: None (occurrence: None)
  Receive Date: 20110415
  Receipt Date: 20110321
  Transmission Date: 20111010
  Serious: No
  Sender: FDA-Public Use
  Company Number: US-B.I. PHARMACEUTICALS,INC./RIDGEFIELD-2011-BP-03503BP

PATIENT
  Sex: Female

DRUGS (9)
  1. METOPROLOL TARTRATE [Concomitant]
     Dosage: 25 MG
     Route: 048
  2. PRADAXA [Suspect]
     Indication: ATRIAL FIBRILLATION
     Dosage: 300 MG
     Route: 048
     Dates: start: 20101104
  3. PRADAXA [Suspect]
     Indication: ARRHYTHMIA
  4. PRADAXA [Suspect]
     Indication: DRUG THERAPY CHANGED
  5. LEVOTHYROXINE SODIUM [Concomitant]
     Dosage: 0.75 MG
  6. LEVOXACIN [Concomitant]
     Indication: THYROID DISORDER
     Dosage: 7.5 MG
     Route: 048
  7. ASPIRIN [Concomitant]
     Dosage: 81 MG
  8. MULTAQ [Concomitant]
     Indication: ATRIAL FIBRILLATION
     Dosage: 400 MG
     Route: 048
  9. EXFORGE [Concomitant]
     Indication: HYPERTENSION
     Route: 048

REACTIONS (2)
  - ABDOMINAL DISCOMFORT [None]
  - THROAT IRRITATION [None]
